FAERS Safety Report 7953890-X (Version None)
Quarter: 2011Q4

REPORT INFORMATION
  Report Type: 
  Country: None (occurrence: None)
  Receive Date: 20111129
  Receipt Date: 20111118
  Transmission Date: 20120403
  Serious: Yes (Death)
  Sender: FDA-Public Use
  Company Number: UTC-012563

PATIENT
  Age: 70 Year
  Sex: Female
  Weight: 81.4 kg

DRUGS (3)
  1. TYVASO [Suspect]
     Indication: COR PULMONALE
     Dosage: 18-54 MCG (4 IN 1 D), INHALATION
     Route: 055
     Dates: start: 20101216
  2. ADCIRCA [Suspect]
  3. TRACLEER [Concomitant]

REACTIONS (1)
  - DEATH [None]
